FAERS Safety Report 4274774-7 (Version None)
Quarter: 2004Q1

REPORT INFORMATION
  Report Type: 
  Country: None (occurrence: None)
  Receive Date: 20040120
  Receipt Date: 20020613
  Transmission Date: 20041129
  Serious: Yes (Hospitalization)
  Sender: FDA-Public Use
  Company Number: US-BRISTOL-MYERS SQUIBB COMPANY-11909140

PATIENT
  Age: 48 Year
  Sex: Female

DRUGS (8)
  1. ATORVASTATIN [Suspect]
     Dosage: MOST RECENT DOSE PRIOR TO ANGINA PECTORIS FEB-2002
     Route: 048
     Dates: start: 20011107
  2. PLACEBO [Suspect]
     Dosage: MOST RECENT DOSE PRIOR TO ANGINA PECTORIS FEB-2002
     Route: 048
     Dates: start: 20011126, end: 20020320
  3. NORVASC [Concomitant]
     Route: 048
     Dates: start: 20010213
  4. ACCUPRIL [Concomitant]
     Route: 048
     Dates: start: 20010901
  5. ASPIRIN [Concomitant]
     Route: 048
     Dates: start: 20010901
  6. HYDROCHLOROTHIAZIDE [Concomitant]
     Route: 048
     Dates: start: 20011101
  7. TOPROL-XL [Concomitant]
     Route: 048
     Dates: start: 20011126
  8. NITROGLYCERIN [Concomitant]
     Route: 050
     Dates: start: 20011126

REACTIONS (7)
  - ALANINE AMINOTRANSFERASE INCREASED [None]
  - ANGINA PECTORIS [None]
  - ASPARTATE AMINOTRANSFERASE INCREASED [None]
  - BLOOD ALKALINE PHOSPHATASE INCREASED [None]
  - CORONARY ARTERY STENOSIS [None]
  - DIABETES MELLITUS [None]
  - MICROANGIOPATHY [None]
